FAERS Safety Report 8781776 (Version 2)
Quarter: 2012Q4

REPORT INFORMATION
  Report Type: 
  Country: JP (occurrence: JP)
  Receive Date: 20120913
  Receipt Date: 20120927
  Transmission Date: 20130627
  Serious: Yes (Other)
  Sender: FDA-Public Use
  Company Number: JP-009507513-1209JPN003123

PATIENT

DRUGS (1)
  1. BONALON [Suspect]
     Route: 048

REACTIONS (1)
  - Atypical femur fracture [Unknown]
